FAERS Safety Report 16303465 (Version 1)
Quarter: 2019Q2

REPORT INFORMATION
  Report Type: Spontaneous
  Country: US (occurrence: US)
  Receive Date: 20190513
  Receipt Date: 20190513
  Transmission Date: 20190711
  Serious: No
  Sender: FDA-Public Use
  Company Number: US-GILEAD-2019-0407105

PATIENT
  Age: 56 Year
  Sex: Female

DRUGS (9)
  1. WARFARIN [Concomitant]
     Active Substance: WARFARIN
  2. XANAX [Concomitant]
     Active Substance: ALPRAZOLAM
  3. HYDROCODONE [Concomitant]
     Active Substance: HYDROCODONE
  4. ALLOPURINOL. [Concomitant]
     Active Substance: ALLOPURINOL
  5. AMBRISENTAN [Suspect]
     Active Substance: AMBRISENTAN
     Indication: PRODUCT USED FOR UNKNOWN INDICATION
     Dosage: 5 MG, QD
     Route: 065
     Dates: start: 20190430
  6. ADEMPAS [Concomitant]
     Active Substance: RIOCIGUAT
  7. CLARITIN [CLARITHROMYCIN] [Concomitant]
     Active Substance: CLARITHROMYCIN
  8. FUROSEMIDE ACCORD [FUROSEMIDE SODIUM] [Concomitant]
  9. ASPIRIN 81 [Concomitant]
     Active Substance: ASPIRIN

REACTIONS (8)
  - Malaise [Not Recovered/Not Resolved]
  - Lung disorder [Not Recovered/Not Resolved]
  - Hypophagia [Not Recovered/Not Resolved]
  - Fatigue [Not Recovered/Not Resolved]
  - Dyspnoea [Not Recovered/Not Resolved]
  - Illness anxiety disorder [Not Recovered/Not Resolved]
  - Insomnia [Not Recovered/Not Resolved]
  - Oedema peripheral [Not Recovered/Not Resolved]
